FAERS Safety Report 16773519 (Version 1)
Quarter: 2019Q3

REPORT INFORMATION
  Report Type: Spontaneous
  Country: SE (occurrence: SE)
  Receive Date: 20190904
  Receipt Date: 20190904
  Transmission Date: 20191005
  Serious: Yes (Life-Threatening, Hospitalization, Disabling)
  Sender: FDA-Public Use
  Company Number: PHHY2019SE204902

PATIENT
  Age: 29 Year
  Sex: Female

DRUGS (2)
  1. QUETIAPINE. [Suspect]
     Active Substance: QUETIAPINE
     Indication: ANXIETY
     Dosage: 50 MG, QD
     Route: 048
  2. QUETIAPINE. [Suspect]
     Active Substance: QUETIAPINE
     Dosage: 200 MG, QD
     Route: 048

REACTIONS (2)
  - Condition aggravated [Recovered/Resolved with Sequelae]
  - Thrombotic thrombocytopenic purpura [Recovered/Resolved with Sequelae]

NARRATIVE: CASE EVENT DATE: 20141201
